FAERS Safety Report 7315251-6 (Version None)
Quarter: 2011Q1

REPORT INFORMATION
  Report Type: 
  Country: None (occurrence: None)
  Receive Date: 20110225
  Receipt Date: 20110221
  Transmission Date: 20110831
  Serious: Yes (Other)
  Sender: FDA-Public Use
  Company Number: DE-PFIZER INC-2011037236

PATIENT
  Age: 36 Year
  Sex: Female

DRUGS (2)
  1. TREVILOR RETARD [Suspect]
  2. VENLAFAXINE HYDROCHLORIDE [Suspect]

REACTIONS (6)
  - SENSORY DISTURBANCE [None]
  - INTENTIONAL SELF-INJURY [None]
  - RESTLESSNESS [None]
  - INSOMNIA [None]
  - DRUG LEVEL FLUCTUATING [None]
  - LOGORRHOEA [None]
